FAERS Safety Report 14293747 (Version 1)
Quarter: 2017Q4

REPORT INFORMATION
  Report Type: Spontaneous
  Country: US (occurrence: US)
  Receive Date: 20171216
  Receipt Date: 20171216
  Transmission Date: 20180321
  Serious: Yes (Other)
  Sender: FDA-Public Use
  Company Number: US-TORRENT-00005574

PATIENT
  Age: 7 Decade
  Sex: Male

DRUGS (2)
  1. LOSARTAN POTASSIUM. [Suspect]
     Active Substance: LOSARTAN POTASSIUM
     Indication: PROTEINURIA
  2. LISINOPRIL. [Interacting]
     Active Substance: LISINOPRIL
     Indication: PROTEINURIA

REACTIONS (4)
  - Drug ineffective for unapproved indication [Unknown]
  - Acute kidney injury [Unknown]
  - Hypotension [Recovered/Resolved]
  - Drug interaction [Unknown]
